FAERS Safety Report 4309490-6 (Version None)
Quarter: 2004Q1

REPORT INFORMATION
  Report Type: 
  Country: None (occurrence: None)
  Receive Date: 20040227
  Receipt Date: 20040219
  Transmission Date: 20041129
  Serious: Yes (Hospitalization)
  Sender: FDA-Public Use
  Company Number: PHBS2004BE02578

PATIENT
  Age: 76 Year
  Sex: Female

DRUGS (6)
  1. DIOVAN [Suspect]
     Indication: HYPERTENSION
     Dosage: 80 MG/D
     Route: 048
     Dates: start: 20030101, end: 20040101
  2. DIOVAN [Suspect]
     Dosage: 160 MG/D
     Route: 048
     Dates: start: 20040101, end: 20040201
  3. DIOVAN [Suspect]
     Dosage: 80 MG/D
     Route: 048
     Dates: start: 20040201
  4. TENORMIN [Concomitant]
  5. DIAMICRON [Concomitant]
  6. METFORMAX [Concomitant]

REACTIONS (4)
  - ANGINA UNSTABLE [None]
  - BLOOD PRESSURE INADEQUATELY CONTROLLED [None]
  - FEELING ABNORMAL [None]
  - VERTIGO [None]
